FAERS Safety Report 20760960 (Version 1)
Quarter: 2022Q2

REPORT INFORMATION
  Report Type: Spontaneous
  Country: CN (occurrence: CN)
  Receive Date: 20220428
  Receipt Date: 20220428
  Transmission Date: 20220721
  Serious: Yes (Other)
  Sender: FDA-Public Use
  Company Number: CN-PFIZER INC-202200585027

PATIENT
  Age: 57 Year
  Sex: Male
  Weight: 70 kg

DRUGS (8)
  1. CYTARABINE [Suspect]
     Active Substance: CYTARABINE
     Indication: Acute myeloid leukaemia
     Dosage: 0.05 G, 1X/DAY
     Route: 037
     Dates: start: 20220328, end: 20220328
  2. CYTARABINE [Suspect]
     Active Substance: CYTARABINE
     Dosage: 2 G, 2X/DAY
     Route: 041
     Dates: start: 20220331, end: 20220402
  3. DEXAMETHASONE SODIUM PHOSPHATE [Concomitant]
     Active Substance: DEXAMETHASONE SODIUM PHOSPHATE
     Indication: Allergy prophylaxis
     Dosage: 5 MG, 1X/DAY
     Route: 037
     Dates: start: 20220328, end: 20220328
  4. SODIUM CHLORIDE [Concomitant]
     Active Substance: SODIUM CHLORIDE
     Indication: Vehicle solution use
     Dosage: 3 ML, 1X/DAY
     Route: 037
     Dates: start: 20220328, end: 20220328
  5. SODIUM CHLORIDE [Concomitant]
     Active Substance: SODIUM CHLORIDE
     Dosage: 500 ML, 2X/DAY
     Route: 041
     Dates: start: 20220331, end: 20220402
  6. METHOTREXATE [Concomitant]
     Active Substance: METHOTREXATE
     Indication: Acute myeloid leukaemia
     Dosage: 10 MG, 1X/DAY
     Route: 037
     Dates: start: 20220328, end: 20220328
  7. SODIUM CHLORIDE [Concomitant]
     Active Substance: SODIUM CHLORIDE
     Indication: Vehicle solution use
     Dosage: 3 ML, 1X/DAY
     Route: 037
     Dates: start: 20220328, end: 20220328
  8. SORAFENIB TOSYLATE [Concomitant]
     Active Substance: SORAFENIB TOSYLATE
     Indication: Therapeutic procedure
     Dosage: 0.4 G, 2X/DAY
     Route: 048
     Dates: start: 20220326, end: 20220404

REACTIONS (5)
  - Rash [Recovering/Resolving]
  - Pain [Recovering/Resolving]
  - Pain in extremity [Recovering/Resolving]
  - Flushing [Recovering/Resolving]
  - Blister [Recovering/Resolving]

NARRATIVE: CASE EVENT DATE: 20220402
